FAERS Safety Report 6237795-0 (Version None)
Quarter: 2009Q2

REPORT INFORMATION
  Report Type: 
  Country: None (occurrence: None)
  Receive Date: 20090617
  Receipt Date: 20090605
  Transmission Date: 20091009
  Serious: Yes (Death, Life-Threatening, Other)
  Sender: FDA-Public Use
  Company Number: 2009-02312

PATIENT
  Sex: Male

DRUGS (3)
  1. VELCADE [Suspect]
     Indication: MULTIPLE MYELOMA
     Dosage: 3.5 MG, INTRAVENOUS
     Route: 042
  2. DEXAMETHASONE [Concomitant]
  3. LEUKERAN [Concomitant]

REACTIONS (2)
  - PNEUMONIA [None]
  - PULMONARY OEDEMA [None]
